FAERS Safety Report 17954842 (Version 1)
Quarter: 2020Q2

REPORT INFORMATION
  Report Type: Report from Study
  Country: US (occurrence: US)
  Receive Date: 20200629
  Receipt Date: 20200629
  Transmission Date: 20200714
  Serious: Yes (Other)
  Sender: FDA-Public Use
  Company Number: US-ROCHE-2616612

PATIENT
  Age: 62 Year
  Sex: Female
  Weight: 72.64 kg

DRUGS (1)
  1. OCREVUS [Suspect]
     Active Substance: OCRELIZUMAB
     Indication: PRIMARY PROGRESSIVE MULTIPLE SCLEROSIS
     Dosage: YES
     Route: 042
     Dates: start: 20200524

REACTIONS (2)
  - Foot fracture [Unknown]
  - Alopecia [Unknown]

NARRATIVE: CASE EVENT DATE: 20200605
